FAERS Safety Report 4852977-8 (Version None)
Quarter: 2005Q4

REPORT INFORMATION
  Report Type: 
  Country: None (occurrence: None)
  Receive Date: 20051212
  Receipt Date: 20051202
  Transmission Date: 20060501
  Serious: Yes (Other)
  Sender: FDA-Public Use
  Company Number: 2005-11-1412

PATIENT
  Age: 38 Year
  Sex: Male

DRUGS (3)
  1. PEG-INTRON [Suspect]
     Indication: HEPATITIS C
     Dosage: 150 MCG SUBCUTANEOUS
     Route: 058
     Dates: start: 20030919, end: 20031204
  2. REBETOL [Suspect]
     Indication: HEPATITIS
     Dosage: 1200 MCG ORAL
     Route: 048
     Dates: start: 20030919
  3. PEGASYS [Suspect]
     Indication: HEPATITIS C
     Dates: start: 20050617, end: 20050617

REACTIONS (4)
  - DRUG INTOLERANCE [None]
  - GENERALISED ERYTHEMA [None]
  - PRURITUS GENERALISED [None]
  - SKIN EXFOLIATION [None]
